FAERS Safety Report 4323899-6 (Version None)
Quarter: 2004Q1

REPORT INFORMATION
  Report Type: 
  Country: None (occurrence: None)
  Receive Date: 20040326
  Receipt Date: 20031009
  Transmission Date: 20041129
  Serious: No
  Sender: FDA-Public Use
  Company Number: US-GLAXOSMITHKLINE-A0429665A

PATIENT
  Age: 38 Year
  Sex: Female
  Weight: 100 kg

DRUGS (5)
  1. ADVAIR DISKUS 100/50 [Suspect]
     Indication: ASTHMA
     Dosage: 1PUFF TWICE PER DAY
     Route: 055
     Dates: start: 20010719
  2. SINGULAIR [Concomitant]
     Indication: ASTHMA
     Dosage: 10MG UNKNOWN
     Route: 048
     Dates: start: 20010101
  3. ALBUTEROL [Concomitant]
     Indication: ASTHMA
     Dosage: 2PUFF AS REQUIRED
     Route: 055
  4. NASONEX [Concomitant]
     Indication: RHINITIS
     Dosage: 2SPR PER DAY
     Route: 045
     Dates: start: 20010101
  5. BROMFENEX [Concomitant]
     Indication: RHINITIS
     Dosage: 1TAB TWICE PER DAY
     Route: 048
     Dates: start: 20010101

REACTIONS (1)
  - DENTAL CARIES [None]
